FAERS Safety Report 6308204-8 (Version None)
Quarter: 2009Q3

REPORT INFORMATION
  Report Type: 
  Country: None (occurrence: None)
  Receive Date: 20090807
  Receipt Date: 20090724
  Transmission Date: 20100115
  Serious: Yes (Other)
  Sender: FDA-Public Use
  Company Number: US-1169177

PATIENT
  Age: 76 Year
  Sex: Female

DRUGS (7)
  1. TRIESENCE [Suspect]
     Indication: MACULAR OEDEMA
     Dosage: (8 MG OD INTRAVITREAL INJECTION INTRAOCULAR)
     Route: 031
     Dates: start: 20090402, end: 20090402
  2. TRIESENCE [Suspect]
     Indication: MACULOPATHY
     Dosage: (8 MG OD INTRAVITREAL INJECTION INTRAOCULAR)
     Route: 031
     Dates: start: 20090402, end: 20090402
  3. ZOCOR [Concomitant]
  4. ASPIRIN [Concomitant]
  5. LUMIGAN [Concomitant]
  6. COSOPT [Concomitant]
  7. PILOCARPINE HYDROCHLORIDE [Concomitant]

REACTIONS (2)
  - ENDOPHTHALMITIS [None]
  - GLAUCOMA SURGERY [None]
